FAERS Safety Report 15271378 (Version 1)
Quarter: 2018Q4

REPORT INFORMATION
  Report Type: Spontaneous
  Country: FR (occurrence: FR)
  Receive Date: 20180813
  Receipt Date: 20180813
  Transmission Date: 20190204
  Serious: No
  Sender: FDA-Public Use
  Company Number: FR-B. BRAUN MEDICAL INC.-2053615

PATIENT
  Age: 41 Year
  Sex: Female

DRUGS (3)
  1. 0.9% SODIUM CHLORIDE IRRIGATION USP 0264-7388-50 0264-7388-60 (NDA 016 [Suspect]
     Active Substance: SODIUM CHLORIDE
  2. CHLORHEXIDINE HYDROCHLORIDE [Concomitant]
     Active Substance: CHLORHEXIDINE HYDROCHLORIDE
  3. DOSISEPTINE [Concomitant]

REACTIONS (1)
  - Eye irritation [None]
